FAERS Safety Report 13598792 (Version 1)
Quarter: 2017Q2

REPORT INFORMATION
  Report Type: Spontaneous
  Country: US (occurrence: US)
  Receive Date: 20170531
  Receipt Date: 20170531
  Transmission Date: 20170830
  Serious: Yes (Other)
  Sender: FDA-Public Use
  Company Number: US-HQ SPECIALTY-US-2017INT000178

PATIENT
  Age: 37 Year
  Sex: Female

DRUGS (4)
  1. CISPLATIN. [Suspect]
     Active Substance: CISPLATIN
     Dosage: UNK, 3 MONTHS
  2. CISPLATIN. [Suspect]
     Active Substance: CISPLATIN
     Indication: CHORIOCARCINOMA
     Dosage: UNK, ONE CYCLE
  3. PACLITAXEL. [Suspect]
     Active Substance: PACLITAXEL
     Indication: CHORIOCARCINOMA
     Dosage: UNK, ONE CYCLE
  4. IFOSFAMIDE AND MESNA [Suspect]
     Active Substance: IFOSFAMIDE\MESNA
     Indication: CHORIOCARCINOMA
     Dosage: UNK, ONE CYCLE

REACTIONS (3)
  - Renal tubular necrosis [Unknown]
  - Febrile neutropenia [Unknown]
  - Acute kidney injury [Unknown]
